FAERS Safety Report 9666284 (Version 1)
Quarter: 2013Q4

REPORT INFORMATION
  Report Type: Spontaneous
  Country: US (occurrence: US)
  Receive Date: 20131104
  Receipt Date: 20131104
  Transmission Date: 20140711
  Serious: No
  Sender: FDA-Public Use
  Company Number: 2013SP003175

PATIENT
  Age: 68 Year
  Sex: Male

DRUGS (3)
  1. LATUDA [Suspect]
     Indication: MENTAL DISORDER
     Route: 048
     Dates: end: 20130418
  2. LATUDA [Suspect]
     Indication: MENTAL DISORDER
     Route: 048
  3. LATUDA [Suspect]
     Indication: MENTAL DISORDER
     Route: 048

REACTIONS (4)
  - Hypersensitivity [Unknown]
  - Dyspnoea [Unknown]
  - Abdominal pain [Unknown]
  - Dysphagia [Unknown]
